FAERS Safety Report 26108549 (Version 1)
Quarter: 2025Q4

REPORT INFORMATION
  Report Type: Report from Study
  Country: CA (occurrence: CA)
  Receive Date: 20251201
  Receipt Date: 20251201
  Transmission Date: 20260117
  Serious: Yes (Other)
  Sender: TAIHO ONCOLOGY INC
  Company Number: CA-TAIHOP-2025-010597

PATIENT
  Age: 71 Year
  Sex: Male

DRUGS (2)
  1. INQOVI [Suspect]
     Active Substance: CEDAZURIDINE\DECITABINE
     Indication: Myelodysplastic syndrome
     Dosage: CYCLE UNKNOWN?1 TABLET (DECITABINE 35 MG AND CEDAZURIDINE 100 MG) ON DAYS 1-5 EVERY 28 DAYS.
     Route: 048
     Dates: start: 20250526
  2. INQOVI [Suspect]
     Active Substance: CEDAZURIDINE\DECITABINE
     Dosage: 1 TABLET (DECITABINE 35 MG AND CEDAZURIDINE 100 MG) ON DAYS 1-4 EVERY 28 DAYS.?CYCLE UNKNOWN
     Route: 048

REACTIONS (4)
  - Transfusion [Unknown]
  - Inappropriate schedule of product administration [Unknown]
  - Fatigue [Unknown]
  - Nausea [Unknown]
